FAERS Safety Report 7686033-0 (Version None)
Quarter: 2011Q3

REPORT INFORMATION
  Report Type: 
  Country: None (occurrence: None)
  Receive Date: 20110816
  Receipt Date: 20110809
  Transmission Date: 20111222
  Serious: No
  Sender: FDA-Public Use
  Company Number: US-PFIZER INC-2011137907

PATIENT
  Sex: Male
  Weight: 77.098 kg

DRUGS (1)
  1. VIAGRA [Suspect]
     Indication: ERECTILE DYSFUNCTION
     Dosage: 25 MG, DAILY
     Route: 048
     Dates: start: 20110501, end: 20110501

REACTIONS (3)
  - SCROTAL ERYTHEMA [None]
  - PENILE ERYTHEMA [None]
  - RASH [None]
